FAERS Safety Report 10847124 (Version 1)
Quarter: 2015Q1

REPORT INFORMATION
  Report Type: Spontaneous
  Country: BR (occurrence: BR)
  Receive Date: 20150220
  Receipt Date: 20150220
  Transmission Date: 20150721
  Serious: Yes (Life-Threatening)
  Sender: FDA-Public Use
  Company Number: PHHY2015BR020391

PATIENT
  Age: 51 Year
  Sex: Female

DRUGS (3)
  1. VOLTAREN [Suspect]
     Active Substance: DICLOFENAC SODIUM
     Indication: PROCEDURAL PAIN
     Dosage: 1 PACKAGE PER WEEK WHEN IN PAIN
     Route: 065
  2. ANADOR//METAMIZOLE SODIUMK [Concomitant]
     Indication: PROCEDURAL PAIN
     Dosage: THREE OR FOUR TIMES DAILY DEPENDING ON THE PAIN
     Route: 048
  3. CATAFLAM [Suspect]
     Active Substance: DICLOFENAC POTASSIUM
     Indication: PROCEDURAL PAIN
     Dosage: 1 PACKAGE QW
     Route: 065

REACTIONS (9)
  - Nausea [Recovered/Resolved]
  - Oropharyngeal pain [Not Recovered/Not Resolved]
  - Liquid product physical issue [Unknown]
  - Fatigue [Not Recovered/Not Resolved]
  - Drug ineffective [Not Recovered/Not Resolved]
  - Malaise [Not Recovered/Not Resolved]
  - Pyrexia [Not Recovered/Not Resolved]
  - Pain [Not Recovered/Not Resolved]
  - Arthritis [Not Recovered/Not Resolved]
